FAERS Safety Report 9813067 (Version 1)
Quarter: 2014Q1

REPORT INFORMATION
  Report Type: Spontaneous
  Country: DE (occurrence: None)
  Receive Date: 20140108
  Receipt Date: 20140108
  Transmission Date: 20141002
  Serious: Yes (Life-Threatening, Hospitalization, Other)
  Sender: FDA-Public Use
  Company Number: 2013367358

PATIENT
  Sex: 0

DRUGS (1)
  1. FRAGMIN P FORTE (DALTEPARIN SODIUM) SOLUTION FOR INJECTION [Suspect]
     Dosage: 1 DF, 2X/DAY, SUBCUTANEOUS
     Route: 058

REACTIONS (5)
  - Off label use [None]
  - Heparin-induced thrombocytopenia [None]
  - Pulmonary embolism [None]
  - Pneumonia [None]
  - Respiratory failure [None]
